FAERS Safety Report 7458335-4 (Version None)
Quarter: 2011Q2

REPORT INFORMATION
  Report Type: 
  Country: None (occurrence: None)
  Receive Date: 20110503
  Receipt Date: 20110503
  Transmission Date: 20111010
  Serious: Yes (Hospitalization)
  Sender: FDA-Public Use
  Company Number: None

PATIENT
  Age: 56 Year
  Sex: Female
  Weight: 83.9154 kg

DRUGS (1)
  1. CHOLESTYRAMINE [Suspect]
     Indication: BLOOD CHOLESTEROL INCREASED
     Dosage: 4 GRAMS DAILY FOR 1 WK PO; 8 GRAMS DAILY CONTINUE PO
     Route: 048
     Dates: start: 20101127, end: 20101208

REACTIONS (1)
  - INTESTINAL OBSTRUCTION [None]
